FAERS Safety Report 15939262 (Version 1)
Quarter: 2019Q1

REPORT INFORMATION
  Report Type: Spontaneous
  Country: GB (occurrence: GB)
  Receive Date: 20190208
  Receipt Date: 20190208
  Transmission Date: 20190417
  Serious: Yes (Other)
  Sender: FDA-Public Use
  Company Number: GB-MYLANLABS-2019M1010925

PATIENT
  Age: 89 Year
  Sex: Female

DRUGS (4)
  1. MITOMYCIN. [Suspect]
     Active Substance: MITOMYCIN
     Indication: OPEN ANGLE GLAUCOMA
     Dosage: RIGHT EYE XEN STENT
     Route: 065
     Dates: start: 201609
  2. MITOMYCIN. [Suspect]
     Active Substance: MITOMYCIN
     Dosage: LEFT EYE XEN
     Route: 065
     Dates: start: 201702
  3. BIMATOPROST;TIMOLOL [Concomitant]
     Indication: OPEN ANGLE GLAUCOMA
     Route: 065
  4. TRUSOPT [Concomitant]
     Active Substance: DORZOLAMIDE HYDROCHLORIDE
     Indication: OPEN ANGLE GLAUCOMA
     Route: 065

REACTIONS (1)
  - Endophthalmitis [Recovered/Resolved]
